FAERS Safety Report 5471747-3 (Version None)
Quarter: 2007Q3

REPORT INFORMATION
  Report Type: 
  Country: None (occurrence: None)
  Receive Date: 20070928
  Receipt Date: 20070502
  Transmission Date: 20080115
  Serious: No
  Sender: FDA-Public Use
  Company Number: US-BRISTOL-MYERS SQUIBB COMPANY-13767629

PATIENT
  Age: 42 Year
  Sex: Male
  Weight: 151 kg

DRUGS (10)
  1. DEFINITY [Suspect]
     Indication: ECHOCARDIOGRAM
     Route: 042
     Dates: start: 20070502, end: 20070502
  2. NEXIUM [Concomitant]
  3. BENTYL [Concomitant]
  4. AVANDIA [Concomitant]
  5. PLAVIX [Concomitant]
  6. LISINOPRIL [Concomitant]
  7. ASPIRIN [Concomitant]
  8. COREG [Concomitant]
  9. NITROGLYCERIN SL [Concomitant]
  10. METFORMIN [Concomitant]

REACTIONS (1)
  - BACK PAIN [None]
